FAERS Safety Report 9380418 (Version 2)
Quarter: 2013Q3

REPORT INFORMATION
  Report Type: Spontaneous
  Country: US (occurrence: None)
  Receive Date: 20130628
  Receipt Date: 20130703
  Transmission Date: 20140515
  Serious: Yes (Other)
  Sender: FDA-Public Use
  Company Number: 2013-0552

PATIENT
  Age: 71 Year
  Sex: Male

DRUGS (5)
  1. KYPROLIS (CARFILZOMIB) (INJECTION FOR INFUSION) (CARFILZOMIB) [Suspect]
     Indication: PLASMA CELL MYELOMA
     Dosage: 10 MG (35 MG, 2 IN 1 WK)
     Route: 042
     Dates: start: 20130314, end: 20130315
  2. CARDURA [Concomitant]
  3. METOPROLOL [Concomitant]
  4. ACYCLOVIR [Concomitant]
  5. FINESTERIDE [Concomitant]

REACTIONS (6)
  - Platelet count decreased [None]
  - Anaemia [None]
  - Fatigue [None]
  - Myocardial infarction [None]
  - Malaise [None]
  - General physical health deterioration [None]
